FAERS Safety Report 22111867 (Version 1)
Quarter: 2023Q1

REPORT INFORMATION
  Report Type: Report from Study
  Country: GB (occurrence: GB)
  Receive Date: 20230318
  Receipt Date: 20230318
  Transmission Date: 20230418
  Serious: Yes (Hospitalization)
  Sender: FDA-Public Use
  Company Number: GB-ROCHE-3050196

PATIENT
  Age: 68 Year
  Sex: Female
  Weight: 65.8 kg

DRUGS (8)
  1. CARBOPLATIN [Suspect]
     Active Substance: CARBOPLATIN
     Indication: Non-small cell lung cancer metastatic
     Dosage: UNIT DOSE : 500 MG, THERAPY END DATE : NASK
     Route: 065
     Dates: start: 20220106
  2. PACLITAXEL [Suspect]
     Active Substance: PACLITAXEL
     Indication: Non-small cell lung cancer metastatic
     Dosage: UNIT DOSE : 336 MG, THERAPY END DATE : NASK
     Route: 065
     Dates: start: 20220106
  3. ATEZOLIZUMAB [Suspect]
     Active Substance: ATEZOLIZUMAB
     Indication: Non-small cell lung cancer metastatic
     Dosage: DOSE LAST STUDY DRUG ADMIN PRIOR AE/SAE WAS 1200 MG AND START DATE OF MOST RECENT DOSE OF STUDY DRUG
     Route: 041
     Dates: start: 20220106
  4. ATEZOLIZUMAB [Suspect]
     Active Substance: ATEZOLIZUMAB
     Route: 065
  5. BEVACIZUMAB [Suspect]
     Active Substance: BEVACIZUMAB
     Indication: Non-small cell lung cancer metastatic
     Dosage: UNIT DOSE : 1000 MG , THERAPY END DATE : NASK
     Route: 065
     Dates: start: 20220106
  6. AKYNZEO [Concomitant]
     Indication: Product used for unknown indication
     Dosage: UNIT DOSE  : 300 MG, DURATION : 1 DAY
     Route: 065
     Dates: start: 20220106, end: 20220106
  7. DACOMITINIB [Concomitant]
     Active Substance: DACOMITINIB
     Indication: Neoplasm malignant
  8. OSIMERTINIB [Concomitant]
     Active Substance: OSIMERTINIB
     Indication: Neoplasm malignant

REACTIONS (2)
  - Neutropenic sepsis [Recovered/Resolved]
  - Rash [Recovered/Resolved]

NARRATIVE: CASE EVENT DATE: 20220111
